FAERS Safety Report 26006279 (Version 1)
Quarter: 2025Q4

REPORT INFORMATION
  Report Type: Spontaneous
  Country: US (occurrence: US)
  Receive Date: 20251106
  Receipt Date: 20251106
  Transmission Date: 20260117
  Serious: Yes (Life-Threatening, Other)
  Sender: BAYER HEALTHCARE LLC
  Company Number: US-BAYER-2025A146195

PATIENT
  Sex: Female

DRUGS (1)
  1. MIRALAX [Suspect]
     Active Substance: POLYETHYLENE GLYCOL 3350
     Dosage: UNK
     Dates: start: 20250927

REACTIONS (1)
  - Hypertension [None]

NARRATIVE: CASE EVENT DATE: 20250927
